FAERS Safety Report 9913050 (Version 1)
Quarter: 2014Q1

REPORT INFORMATION
  Report Type: Spontaneous
  Country: US (occurrence: None)
  Receive Date: 20140218
  Receipt Date: 20140218
  Transmission Date: 20141002
  Serious: Yes (Other)
  Sender: FDA-Public Use
  Company Number: None

PATIENT
  Age: 14 Year
  Sex: Female
  Weight: 60.5 kg

DRUGS (2)
  1. MORPHINE [Suspect]
     Indication: PAIN
     Dosage: 90 DAY FROM CPD DATE, 3MG PRN/AS NEEDED INTRAVENOUS
     Route: 042
  2. GOLVTELV [Concomitant]

REACTIONS (4)
  - Chest pain [None]
  - Infusion related reaction [None]
  - Dyspnoea [None]
  - Chest discomfort [None]
